FAERS Safety Report 4379064-X (Version None)
Quarter: 2004Q2

REPORT INFORMATION
  Report Type: 
  Country: None (occurrence: None)
  Receive Date: 20040610
  Receipt Date: 20040528
  Transmission Date: 20050107
  Serious: Yes (Hospitalization)
  Sender: FDA-Public Use
  Company Number: 2004-06-0005

PATIENT
  Age: 56 Year
  Sex: Female

DRUGS (3)
  1. LORATADINE [Suspect]
     Indication: RASH
     Dosage: ORAL
     Route: 048
     Dates: start: 20040517, end: 20040517
  2. DOTHIEPIN HYDROCHLORIDE [Concomitant]
  3. ARTHROTEC TABS [Concomitant]

REACTIONS (1)
  - DYSTONIA [None]
